FAERS Safety Report 8046941-8 (Version None)
Quarter: 2012Q1

REPORT INFORMATION
  Report Type: 
  Country: None (occurrence: None)
  Receive Date: 20120116
  Receipt Date: 20111206
  Transmission Date: 20120608
  Serious: No
  Sender: FDA-Public Use
  Company Number: US-BAYER-2011-117777

PATIENT
  Age: 54 Year
  Sex: Male

DRUGS (6)
  1. PROPRANOLOL [Concomitant]
  2. GEMFIBROZIL [Concomitant]
  3. COUMADIN [Concomitant]
  4. LEVITRA [Suspect]
     Indication: ERECTILE DYSFUNCTION
     Dosage: 20 MG, ONCE
     Route: 048
     Dates: start: 20111203
  5. LISINOPRIL [Concomitant]
  6. TOPAMAX [Concomitant]

REACTIONS (1)
  - ERECTILE DYSFUNCTION [None]
